FAERS Safety Report 9548033 (Version 1)
Quarter: 2013Q3

REPORT INFORMATION
  Report Type: Spontaneous
  Country: US (occurrence: None)
  Receive Date: 20130923
  Receipt Date: 20130923
  Transmission Date: 20140515
  Serious: Yes (Other)
  Sender: FDA-Public Use
  Company Number: None

PATIENT
  Age: 62 Year
  Sex: Female

DRUGS (1)
  1. SENSIPAR [Suspect]
     Indication: RENAL IMPAIRMENT
     Route: 048
     Dates: start: 20130329, end: 20130919

REACTIONS (3)
  - Abdominal pain upper [None]
  - Fatigue [None]
  - Asthenia [None]
